FAERS Safety Report 16019833 (Version 2)
Quarter: 2019Q1

REPORT INFORMATION
  Report Type: Report from Study
  Country: US (occurrence: US)
  Receive Date: 20190228
  Receipt Date: 20190308
  Transmission Date: 20190418
  Serious: Yes (Other)
  Sender: FDA-Public Use
  Company Number: US-TEVA-2019-US-1016920

PATIENT
  Sex: Female

DRUGS (2)
  1. CLARAVIS [Suspect]
     Active Substance: ISOTRETINOIN
     Dosage: 50 MILLIGRAM DAILY
     Route: 065
     Dates: start: 20180927, end: 20190208
  2. CLARAVIS [Suspect]
     Active Substance: ISOTRETINOIN
     Dosage: 50 MILLIGRAM DAILY (40 MILLIGRAM AND 10 MILLIGRAM)
     Route: 065
     Dates: start: 20180927, end: 20190208

REACTIONS (1)
  - Unintended pregnancy [Unknown]
